FAERS Safety Report 7450489-9 (Version None)
Quarter: 2011Q2

REPORT INFORMATION
  Report Type: 
  Country: None (occurrence: None)
  Receive Date: 20110429
  Receipt Date: 20110429
  Transmission Date: 20111010
  Serious: Yes (Other)
  Sender: FDA-Public Use
  Company Number: None

PATIENT
  Sex: Female
  Weight: 64.6829 kg

DRUGS (1)
  1. LOSARTAN POTASSIUM 100MG ROXANE LABORATORIES [Suspect]
     Indication: HYPERTENSION
     Dosage: 100MG ONCE DAILY PO   ONE DOSE
     Route: 048
     Dates: start: 20110418, end: 20110418

REACTIONS (1)
  - SYNCOPE [None]
